FAERS Safety Report 7499811-8 (Version None)
Quarter: 2011Q2

REPORT INFORMATION
  Report Type: 
  Country: None (occurrence: None)
  Receive Date: 20110524
  Receipt Date: 20110512
  Transmission Date: 20111010
  Serious: Yes (Other)
  Sender: FDA-Public Use
  Company Number: JP-BAYER-2011-029841

PATIENT
  Age: 79 Year
  Sex: Female
  Weight: 68 kg

DRUGS (7)
  1. RESTOL TAIYO [Concomitant]
     Dosage: DAILY DOSE .5 ?G
     Route: 048
  2. URSO 250 [Concomitant]
     Dosage: DAILY DOSE 900 MG
     Route: 048
  3. ASPARA-CA [Concomitant]
     Dosage: DAILY DOSE 800 MG
     Route: 048
  4. CANDESARTAN CILEXETIL [Concomitant]
     Dosage: 4 MG, QD
     Route: 048
  5. NEXAVAR [Suspect]
     Indication: HEPATIC NEOPLASM MALIGNANT
     Dosage: DAILY DOSE 400 MG
     Route: 048
     Dates: start: 20110318, end: 20110327
  6. LUPRAC [Concomitant]
     Dosage: DAILY DOSE 8 MG
     Route: 048
  7. ATELEC [Concomitant]
     Dosage: 10 MG, QD
     Route: 048

REACTIONS (1)
  - HEPATIC ENCEPHALOPATHY [None]
